FAERS Safety Report 8284901-2 (Version None)
Quarter: 2012Q2

REPORT INFORMATION
  Report Type: 
  Country: None (occurrence: None)
  Receive Date: 20120413
  Receipt Date: 20110714
  Transmission Date: 20120825
  Serious: No
  Sender: FDA-Public Use
  Company Number: US-ASTRAZENECA-2010SE22461

PATIENT
  Age: 42 Year
  Sex: Female

DRUGS (6)
  1. IRON [Concomitant]
  2. VITAMIN D [Concomitant]
  3. MAXALT [Concomitant]
  4. CENTRUM CHEWABLE [Concomitant]
  5. VITAMIN B-12 [Concomitant]
  6. NEXIUM [Suspect]
     Route: 048

REACTIONS (7)
  - CHEST DISCOMFORT [None]
  - DRUG DOSE OMISSION [None]
  - CHEST PAIN [None]
  - GASTROOESOPHAGEAL REFLUX DISEASE [None]
  - NAUSEA [None]
  - INCORRECT DOSE ADMINISTERED [None]
  - MIGRAINE [None]
